FAERS Safety Report 6282136-6 (Version None)
Quarter: 2009Q3

REPORT INFORMATION
  Report Type: 
  Country: None (occurrence: None)
  Receive Date: 20090724
  Receipt Date: 20090713
  Transmission Date: 20100115
  Serious: Yes (Hospitalization)
  Sender: FDA-Public Use
  Company Number: FR-ALLERGAN-0905565US

PATIENT
  Age: 1 Day
  Sex: Female

DRUGS (4)
  1. LUMIGAN [Suspect]
     Indication: DRUG EXPOSURE DURING PREGNANCY
     Dosage: UNK, UNK
     Route: 064
     Dates: end: 20080201
  2. COSOPT [Suspect]
     Indication: DRUG EXPOSURE DURING PREGNANCY
     Dosage: UNK, UNK
     Route: 064
     Dates: end: 20080201
  3. CARTROL [Suspect]
     Indication: DRUG EXPOSURE DURING PREGNANCY
     Dosage: UNK, UNK
     Route: 064
     Dates: start: 20080201, end: 20080503
  4. TIMOPTIC [Concomitant]
     Indication: DRUG EXPOSURE DURING PREGNANCY
     Dosage: UNK, UNK
     Route: 064
     Dates: end: 20080201

REACTIONS (5)
  - BRADYCARDIA [None]
  - BRADYCARDIA NEONATAL [None]
  - CAESAREAN SECTION [None]
  - MATERNAL DRUGS AFFECTING FOETUS [None]
  - PREMATURE BABY [None]
